FAERS Safety Report 9380803 (Version 3)
Quarter: 2014Q1

REPORT INFORMATION
  Report Type: Spontaneous
  Country: US (occurrence: US)
  Receive Date: 20130702
  Receipt Date: 20140304
  Transmission Date: 20141002
  Serious: Yes (Hospitalization)
  Sender: FDA-Public Use
  Company Number: US-B.I. PHARMACEUTICALS,INC./RIDGEFIELD-2013-BI-18749BP

PATIENT
  Age: 74 Year
  Sex: Female
  Weight: 56.7 kg

DRUGS (13)
  1. PRADAXA [Suspect]
     Indication: ATRIAL FIBRILLATION
     Dosage: 300 MG
     Route: 065
     Dates: start: 20110702, end: 20110805
  2. PRADAXA [Suspect]
     Indication: ANTICOAGULANT THERAPY
  3. POTASSIUM CHLORIDE [Concomitant]
     Dosage: 20 MEQ
     Route: 065
     Dates: start: 20110103
  4. INSULIN NPH [Concomitant]
     Dosage: 60 U
     Route: 065
     Dates: start: 20110103
  5. ACYCLOVIR [Concomitant]
     Dosage: 250 MG
     Route: 065
     Dates: start: 20110103
  6. METOPROLOL SUCCINATE [Concomitant]
     Dosage: 12.5 MG
     Route: 065
     Dates: start: 20110526
  7. VITAMIN D [Concomitant]
     Dosage: 6000 U
     Route: 065
     Dates: start: 20110103
  8. LISINOPRIL [Concomitant]
     Dosage: 10 MG
     Route: 065
     Dates: start: 20110103
  9. LOVASTATIN [Concomitant]
     Dosage: 20 MG
     Route: 048
     Dates: start: 20110103
  10. DIGOXIN [Concomitant]
     Dosage: 0.1875 MG
     Route: 065
     Dates: start: 20110103
  11. MIRALAX [Concomitant]
     Route: 065
  12. FUROSEMIDE [Concomitant]
     Dosage: 40 MG
     Route: 065
     Dates: start: 20110103
  13. VITAMINS [Concomitant]
     Route: 065

REACTIONS (2)
  - Gastrointestinal haemorrhage [Unknown]
  - Lower gastrointestinal haemorrhage [Unknown]
